FAERS Safety Report 8211346-3 (Version None)
Quarter: 2012Q1

REPORT INFORMATION
  Report Type: 
  Country: None (occurrence: None)
  Receive Date: 20120315
  Receipt Date: 20120315
  Transmission Date: 20120608
  Serious: Yes (Death)
  Sender: FDA-Public Use
  Company Number: None

PATIENT
  Age: 89 Year
  Sex: Female
  Weight: 54.4 kg

DRUGS (2)
  1. CEFEPIME [Suspect]
     Indication: PNEUMONIA ASPIRATION
     Dosage: 1 GM
     Route: 042
     Dates: start: 20111221, end: 20111226
  2. CEFEPIME [Concomitant]
     Indication: PNEUMONIA ASPIRATION
     Dosage: 0.5 GM
     Route: 042
     Dates: start: 20111227, end: 20111228

REACTIONS (6)
  - CONVULSION [None]
  - STATUS EPILEPTICUS [None]
  - CONFUSIONAL STATE [None]
  - LETHARGY [None]
  - DEHYDRATION [None]
  - ENCEPHALOPATHY [None]
